FAERS Safety Report 25324805 (Version 1)
Quarter: 2025Q2

REPORT INFORMATION
  Report Type: Report from Study
  Country: US (occurrence: US)
  Receive Date: 20250516
  Receipt Date: 20250516
  Transmission Date: 20250716
  Serious: Yes (Other)
  Sender: TG THERAPEUTICS
  Company Number: US-TG THERAPEUTICS INC.-TGT005077

PATIENT

DRUGS (2)
  1. UBLITUXIMAB [Suspect]
     Active Substance: UBLITUXIMAB
     Indication: Multiple sclerosis
     Route: 042
     Dates: start: 20240710, end: 20240710
  2. UBLITUXIMAB [Suspect]
     Active Substance: UBLITUXIMAB
     Route: 042
     Dates: start: 20241230, end: 20241230

REACTIONS (8)
  - Loss of control of legs [Unknown]
  - Influenza [Unknown]
  - General physical health deterioration [Unknown]
  - Feeling drunk [Unknown]
  - Feeling abnormal [Unknown]
  - Balance disorder [Unknown]
  - Paraesthesia [Unknown]
  - Multiple sclerosis [Unknown]

NARRATIVE: CASE EVENT DATE: 20250301
